FAERS Safety Report 9290618 (Version 1)
Quarter: 2013Q2

REPORT INFORMATION
  Report Type: Report from Study
  Country: VE (occurrence: VE)
  Receive Date: 20130515
  Receipt Date: 20130515
  Transmission Date: 20140414
  Serious: Yes (Hospitalization)
  Sender: FDA-Public Use
  Company Number: VE-ROCHE-1224686

PATIENT
  Age: 65 Year
  Sex: Female

DRUGS (3)
  1. XOLAIR [Suspect]
     Indication: ASTHMA
     Route: 058
  2. XOLAIR [Suspect]
     Route: 065
     Dates: end: 201211
  3. XOLAIR [Suspect]
     Route: 065

REACTIONS (1)
  - Myocardial infarction [Recovered/Resolved]
